FAERS Safety Report 23111522 (Version 1)
Quarter: 2023Q4

REPORT INFORMATION
  Report Type: Spontaneous
  Country: ES (occurrence: None)
  Receive Date: 20231026
  Receipt Date: 20231026
  Transmission Date: 20240110
  Serious: Yes (Death, Other)
  Sender: FDA-Public Use
  Company Number: 2023A239132

PATIENT
  Age: 47 Year
  Sex: Female

DRUGS (1)
  1. OLAPARIB [Suspect]
     Active Substance: OLAPARIB
     Indication: Ovarian cancer stage III
     Route: 048
     Dates: start: 20161226

REACTIONS (2)
  - Malignant neoplasm progression [Fatal]
  - Drug resistance [Unknown]
